FAERS Safety Report 19626711 (Version 4)
Quarter: 2021Q3

REPORT INFORMATION
  Report Type: Spontaneous
  Country: US (occurrence: US)
  Receive Date: 20210728
  Receipt Date: 20210816
  Transmission Date: 20211014
  Serious: Yes (Hospitalization, Other)
  Sender: FDA-Public Use
  Company Number: US-GLAXOSMITHKLINE-US2021159290

PATIENT
  Sex: Female

DRUGS (2)
  1. ZEJULA [Suspect]
     Active Substance: NIRAPARIB
     Dosage: 300 MG, QD
     Route: 048
     Dates: start: 20210615, end: 20210720
  2. ZEJULA [Suspect]
     Active Substance: NIRAPARIB
     Indication: OVARIAN CANCER
     Dosage: UNK
     Dates: start: 202105

REACTIONS (16)
  - Dyspepsia [Unknown]
  - Small intestinal obstruction [Unknown]
  - Heart rate increased [Unknown]
  - Decreased appetite [Unknown]
  - Fall [Unknown]
  - Dyspnoea [Unknown]
  - Weight decreased [Unknown]
  - Nausea [Unknown]
  - Malaise [Unknown]
  - Asthenia [Unknown]
  - Vomiting [Unknown]
  - Abdominal pain [Unknown]
  - Product dose omission issue [Unknown]
  - Adverse drug reaction [Unknown]
  - Constipation [Unknown]
  - Diarrhoea [Unknown]
